FAERS Safety Report 16409256 (Version 1)
Quarter: 2019Q2

REPORT INFORMATION
  Report Type: Spontaneous
  Country: US (occurrence: US)
  Receive Date: 20190610
  Receipt Date: 20190610
  Transmission Date: 20190711
  Serious: No
  Sender: FDA-Public Use
  Company Number: US-GLAXOSMITHKLINE-US2019102607

PATIENT
  Sex: Female

DRUGS (1)
  1. FLOVENT DISKUS [Suspect]
     Active Substance: FLUTICASONE PROPIONATE
     Indication: PRODUCT USED FOR UNKNOWN INDICATION
     Dosage: 1 PUFF(S), BID 44MCG
     Dates: start: 201902

REACTIONS (9)
  - Oral pain [Recovering/Resolving]
  - Oropharyngeal pain [Recovered/Resolved]
  - Viral infection [Unknown]
  - Mouth ulceration [Recovered/Resolved]
  - Headache [Recovered/Resolved]
  - Gingival erythema [Unknown]
  - Gingival swelling [Not Recovered/Not Resolved]
  - Gingival bleeding [Unknown]
  - Mastication disorder [Not Recovered/Not Resolved]

NARRATIVE: CASE EVENT DATE: 2019
